FAERS Safety Report 17562292 (Version 1)
Quarter: 2020Q1

REPORT INFORMATION
  Report Type: Report from Study
  Country: NL (occurrence: NL)
  Receive Date: 20200319
  Receipt Date: 20200319
  Transmission Date: 20200409
  Serious: Yes (Hospitalization)
  Sender: FDA-Public Use
  Company Number: NL-MYLANLABS-2020M1028563

PATIENT
  Age: 24 Year
  Sex: Female

DRUGS (5)
  1. AZATHIOPRINE. [Suspect]
     Active Substance: AZATHIOPRINE
     Indication: CROHN^S DISEASE
     Dosage: 50 MILLIGRAM, Q8H, 50MG, 3X/D
     Route: 048
     Dates: start: 20070420, end: 20070520
  2. INFLIXIMAB [Concomitant]
     Active Substance: INFLIXIMAB
     Dosage: UNK, MG, 1X/8W
     Route: 042
     Dates: start: 20070423, end: 20070720
  3. BECLOMETASONE W/MESALAZINE [Concomitant]
     Dosage: 1 DOSAGE FORM, QD, 2000/3MG, 1X/D
     Route: 054
     Dates: start: 20070514, end: 20070520
  4. TRAMADOL                           /00599202/ [Concomitant]
     Active Substance: TRAMADOL
     Dosage: UNK, MG, ZN
     Route: 048
  5. PREDNISON [Concomitant]
     Active Substance: PREDNISONE
     Dosage: UNK, MG, 1X/D
     Route: 048
     Dates: start: 20070416, end: 20071101

REACTIONS (1)
  - Pancreatitis [Recovered/Resolved]

NARRATIVE: CASE EVENT DATE: 20070520
